FAERS Safety Report 11879111 (Version 1)
Quarter: 2015Q4

REPORT INFORMATION
  Report Type: Spontaneous
  Country: KR (occurrence: KR)
  Receive Date: 20151230
  Receipt Date: 20151230
  Transmission Date: 20160305
  Serious: Yes (Hospitalization)
  Sender: FDA-Public Use
  Company Number: KR-AMGEN-KORCT2015139186

PATIENT
  Age: 64 Year
  Sex: Female
  Weight: 43.2 kg

DRUGS (9)
  1. STILNOX [Concomitant]
     Active Substance: ZOLPIDEM TARTRATE
     Dosage: 60 MG, UNK
     Route: 048
     Dates: start: 20110110
  2. EVISTA [Concomitant]
     Active Substance: RALOXIFENE HYDROCHLORIDE
     Dosage: 60 MG, UNK
     Route: 048
     Dates: start: 20110325
  3. PROAMIN [Concomitant]
     Dosage: 1 BOTTLE
     Route: 042
     Dates: start: 20111128, end: 20130405
  4. EPOKINE [Concomitant]
     Dosage: 1
     Route: 058
     Dates: start: 20100730
  5. CEREBREX [Concomitant]
     Active Substance: CALCIUM GLYCEROPHOSPHATE\CALCIUM PHOSPHATE\GLUTAMIC ACID\VITAMIN B
     Dosage: 1 CAP
     Route: 048
     Dates: start: 20130109
  6. RENALMIN [Concomitant]
     Dosage: 1 TAB
     Route: 048
     Dates: start: 20110404
  7. ONEALFA [Concomitant]
     Active Substance: ALFACALCIDOL
     Dosage: 0.5 MUG, UNK
     Route: 048
     Dates: start: 20070126
  8. TRIDOL [Concomitant]
     Dosage: 25 MG, AS NECESSARY
     Route: 042
  9. REGPARA [Suspect]
     Active Substance: CINACALCET HYDROCHLORIDE
     Indication: HYPERPARATHYROIDISM SECONDARY
     Dosage: 25 MG, QD
     Route: 048
     Dates: start: 20130403

REACTIONS (1)
  - Large intestine polyp [Recovered/Resolved]

NARRATIVE: CASE EVENT DATE: 20130508
